FAERS Safety Report 9779965 (Version 1)
Quarter: 2013Q4

REPORT INFORMATION
  Report Type: Spontaneous
  Country: MX (occurrence: MX)
  Receive Date: 20131223
  Receipt Date: 20131223
  Transmission Date: 20140711
  Serious: Yes (Death)
  Sender: FDA-Public Use
  Company Number: MX-PFIZER INC-2013366181

PATIENT
  Age: 82 Year
  Sex: Male

DRUGS (1)
  1. CELEBREX [Suspect]
     Dosage: UNK

REACTIONS (1)
  - Death [Fatal]
